FAERS Safety Report 4678069-9 (Version None)
Quarter: 2005Q2

REPORT INFORMATION
  Report Type: 
  Country: None (occurrence: None)
  Receive Date: 20050601
  Receipt Date: 20050518
  Transmission Date: 20051028
  Serious: Yes (Hospitalization)
  Sender: FDA-Public Use
  Company Number: FR-SANOFI-SYNTHELABO-A02200501363

PATIENT
  Age: 70 Year
  Sex: Male

DRUGS (5)
  1. FASTURTEC [Suspect]
     Indication: NON-HODGKIN'S LYMPHOMA
     Dosage: UNK
     Route: 042
  2. GLUCOSE SOLUTION 30% [Suspect]
     Indication: DRUG USE FOR UNKNOWN INDICATION
  3. SOLU-MEDROL [Concomitant]
     Indication: DRUG USE FOR UNKNOWN INDICATION
     Dosage: UNK
     Route: 042
  4. SODIUM CHLORIDE [Concomitant]
     Indication: DRUG USE FOR UNKNOWN INDICATION
     Dosage: UNK
     Route: 042
  5. ANTIBIOTICS NOS [Concomitant]
     Indication: INFECTION

REACTIONS (3)
  - INJECTION SITE NECROSIS [None]
  - INJECTION SITE VESICLES [None]
  - MEDICATION ERROR [None]
